FAERS Safety Report 17040659 (Version 1)
Quarter: 2019Q4

REPORT INFORMATION
  Report Type: Spontaneous
  Country: US (occurrence: US)
  Receive Date: 20191117
  Receipt Date: 20191117
  Transmission Date: 20200122
  Serious: Yes (Other)
  Sender: FDA-Public Use
  Company Number: US-ELI_LILLY_AND_COMPANY-US201911002910

PATIENT
  Age: 58 Year
  Sex: Male

DRUGS (4)
  1. HUMULIN N [Suspect]
     Active Substance: INSULIN HUMAN
     Indication: DIABETES MELLITUS
     Dosage: 50 U, TID
     Route: 058
  2. NOVOLOG [Concomitant]
     Active Substance: INSULIN ASPART
     Indication: PRODUCT USED FOR UNKNOWN INDICATION
     Dosage: 40 U, OTHER (MEAL TIME)
  3. HUMULIN N [Suspect]
     Active Substance: INSULIN HUMAN
     Dosage: 50 U, TID
     Route: 058
  4. NITROGLYCERINE [Suspect]
     Active Substance: NITROGLYCERIN
     Indication: CHEST PAIN
     Dosage: UNK, UNKNOWN
     Route: 065

REACTIONS (4)
  - Eye haemorrhage [Unknown]
  - Gastrointestinal motility disorder [Unknown]
  - Chest pain [Unknown]
  - Visual impairment [Unknown]

NARRATIVE: CASE EVENT DATE: 201910
